FAERS Safety Report 14591080 (Version 2)
Quarter: 2018Q1

REPORT INFORMATION
  Report Type: Report from Study
  Country: CA (occurrence: CA)
  Receive Date: 20180302
  Receipt Date: 20180306
  Transmission Date: 20180509
  Serious: Yes (Hospitalization, Other)
  Sender: FDA-Public Use
  Company Number: CA-TOLMAR, INC.-2018CA002274

PATIENT

DRUGS (3)
  1. ASA [Concomitant]
     Active Substance: ASPIRIN
  2. ELIGARD [Suspect]
     Active Substance: LEUPROLIDE ACETATE
     Indication: PROSTATE CANCER
     Dosage: 45 MG, EVERY 6 MONTHS
     Route: 058
     Dates: start: 20161215
  3. K-DUR [Concomitant]
     Active Substance: POTASSIUM CHLORIDE

REACTIONS (7)
  - Influenza [Recovered/Resolved]
  - Nephrectomy [Unknown]
  - Haematuria [Recovered/Resolved]
  - Metastases to urinary tract [Recovered/Resolved]
  - Depressed mood [Unknown]
  - Renal cancer [Recovered/Resolved]
  - Prostate cancer recurrent [Unknown]

NARRATIVE: CASE EVENT DATE: 2017
